FAERS Safety Report 17305497 (Version 1)
Quarter: 2020Q1

REPORT INFORMATION
  Report Type: Spontaneous
  Country: FR (occurrence: FR)
  Receive Date: 20200123
  Receipt Date: 20200123
  Transmission Date: 20200409
  Serious: Yes (Life-Threatening)
  Sender: FDA-Public Use
  Company Number: FR-PFIZER INC-2020026783

PATIENT
  Age: 46 Year
  Sex: Female

DRUGS (7)
  1. ATARAX [Suspect]
     Active Substance: HYDROXYZINE HYDROCHLORIDE
     Dosage: 500 MG (20 DF), SINGLE
     Route: 048
     Dates: start: 20191024, end: 20191024
  2. VALIUM [Suspect]
     Active Substance: DIAZEPAM
     Dosage: 270 MG (27 DF), SINGLE
     Route: 048
     Dates: start: 20191024, end: 20191024
  3. DESOGESTREL [Suspect]
     Active Substance: DESOGESTREL
     Dosage: 4 DF, SINGLE
     Route: 048
     Dates: start: 20191024, end: 20191024
  4. THERALENE [Suspect]
     Active Substance: TRIMEPRAZINE
     Dosage: 30 ML, SINGLE
     Route: 048
     Dates: start: 20191024, end: 20191024
  5. VALIUM [Suspect]
     Active Substance: DIAZEPAM
     Dosage: 95 MG (19DF), SINGLE
     Route: 048
     Dates: start: 20191024, end: 20191024
  6. VENLAFAXINE HCL [Suspect]
     Active Substance: VENLAFAXINE HYDROCHLORIDE
     Dosage: 20 DF, SINGLE
     Route: 048
     Dates: start: 20191024, end: 20191024
  7. DOLIPRANE [Suspect]
     Active Substance: ACETAMINOPHEN
     Dosage: 46 DF, SINGLE
     Route: 048
     Dates: start: 20191024, end: 20191024

REACTIONS (2)
  - Suicide attempt [Recovered/Resolved]
  - Intentional overdose [Unknown]

NARRATIVE: CASE EVENT DATE: 20191024
